FAERS Safety Report 7522171-0 (Version None)
Quarter: 2011Q2

REPORT INFORMATION
  Report Type: 
  Country: None (occurrence: None)
  Receive Date: 20110603
  Receipt Date: 20110331
  Transmission Date: 20111010
  Serious: No
  Sender: FDA-Public Use
  Company Number: US-BAYER-2011-028898

PATIENT

DRUGS (1)
  1. ALEVE (CAPLET) [Suspect]
     Indication: INFLAMMATORY PAIN
     Route: 048

REACTIONS (1)
  - INFLAMMATORY PAIN [None]
